FAERS Safety Report 16257957 (Version 1)
Quarter: 2019Q2

REPORT INFORMATION
  Report Type: Spontaneous
  Country: US (occurrence: US)
  Receive Date: 20190430
  Receipt Date: 20190430
  Transmission Date: 20190711
  Serious: No
  Sender: FDA-Public Use
  Company Number: US-EPIC PHARMA LLC-2018EPC00456

PATIENT
  Age: 76 Year
  Sex: Male
  Weight: 58.96 kg

DRUGS (1)
  1. URSODIOL. [Suspect]
     Active Substance: URSODIOL
     Indication: LIVER DISORDER
     Dosage: 600 MG, 1X/DAY
     Route: 048
     Dates: start: 201810

REACTIONS (2)
  - Product physical issue [Recovered/Resolved]
  - Taste disorder [Recovered/Resolved]

NARRATIVE: CASE EVENT DATE: 201810
